FAERS Safety Report 6359094-9 (Version None)
Quarter: 2009Q3

REPORT INFORMATION
  Report Type: 
  Country: None (occurrence: None)
  Receive Date: 20090917
  Receipt Date: 20070613
  Transmission Date: 20100115
  Serious: Yes (Other)
  Sender: FDA-Public Use
  Company Number: US-ASTRAZENECA-2006UW22827

PATIENT
  Age: 16470 Day
  Sex: Female
  Weight: 100.2 kg

DRUGS (15)
  1. SEROQUEL [Suspect]
     Route: 048
     Dates: start: 20030728
  2. ASPIRIN [Concomitant]
     Route: 048
     Dates: start: 20051110
  3. DEPAKOTE [Concomitant]
     Dosage: 250 MG QD,ER 500 MG 2 QHS,500 MG 1 QAM AND 1 QPM
     Route: 048
     Dates: start: 20030616
  4. GLUCOPHAGE [Concomitant]
     Dosage: 2000 MG, XR 500 MG 2 QHS, XR 500 MG 2 BID
     Route: 048
     Dates: start: 20051011
  5. LEXAPRO [Concomitant]
     Dosage: 10-20 MG DAILY
     Route: 048
     Dates: start: 20060330
  6. WELLBUTRIN [Concomitant]
     Dosage: XL 150 MG 1 QD, SR 150 MG 1 BID
     Route: 048
     Dates: start: 20010118
  7. TRAZODONE HYDROCHLORIDE [Concomitant]
     Route: 048
     Dates: start: 20030903
  8. LOTREL [Concomitant]
     Dosage: 5-20 MG 1 QD
     Route: 048
     Dates: start: 20060330
  9. NEXIUM [Concomitant]
     Route: 048
     Dates: start: 20030602
  10. LIPITOR [Concomitant]
     Dates: start: 20030523
  11. AMBIEN [Concomitant]
     Dosage: 10 MG QHS PRN
     Route: 048
     Dates: start: 20070625
  12. CLARINEX [Concomitant]
     Dates: start: 20030825
  13. DYAZIDE [Concomitant]
     Dosage: 37.5/25 MG EVERY DAY
     Dates: start: 20070625
  14. METOPROLOL TARTRATE [Concomitant]
     Dates: start: 20070625
  15. ESTRADIOL [Concomitant]
     Route: 048
     Dates: start: 20030522

REACTIONS (3)
  - DIABETES MELLITUS [None]
  - HYPERGLYCAEMIA [None]
  - NEUROPATHY PERIPHERAL [None]
